FAERS Safety Report 16122683 (Version 2)
Quarter: 2019Q2

REPORT INFORMATION
  Report Type: Spontaneous
  Country: TR (occurrence: TR)
  Receive Date: 20190327
  Receipt Date: 20190405
  Transmission Date: 20190711
  Serious: Yes (Hospitalization)
  Sender: FDA-Public Use
  Company Number: TR-SA-2019SA078153

PATIENT
  Age: 48 Year
  Sex: Male
  Weight: 59 kg

DRUGS (4)
  1. TOUJEO [Suspect]
     Active Substance: INSULIN GLARGINE
     Indication: DIABETES MELLITUS
     Dosage: 25 U, QD
     Route: 058
  2. URSOFALK [Concomitant]
     Active Substance: URSODIOL
     Indication: LIVER DISORDER
     Dosage: 2 DF, UNK
     Route: 065
     Dates: start: 2017
  3. TOUJEO [Suspect]
     Active Substance: INSULIN GLARGINE
     Dosage: 24 U, QD
     Route: 058
  4. APIDRA [Suspect]
     Active Substance: INSULIN GLULISINE
     Indication: DIABETES MELLITUS
     Dosage: 4 U, BID
     Route: 058

REACTIONS (4)
  - Syncope [Recovered/Resolved]
  - Blood glucose decreased [Recovered/Resolved]
  - Blood glucose decreased [Not Recovered/Not Resolved]
  - Tongue biting [Recovered/Resolved]

NARRATIVE: CASE EVENT DATE: 201902
